FAERS Safety Report 6296215-0 (Version None)
Quarter: 2009Q3

REPORT INFORMATION
  Report Type: 
  Country: None (occurrence: None)
  Receive Date: 20090803
  Receipt Date: 20090803
  Transmission Date: 20100115
  Serious: Yes (Hospitalization)
  Sender: FDA-Public Use
  Company Number: None

PATIENT
  Age: 62 Year

DRUGS (1)
  1. TERAZOSIN HCL [Suspect]
     Dosage: 4 MG AT BEDTIME PO
     Route: 048
     Dates: start: 20080829

REACTIONS (4)
  - CONVULSION [None]
  - CYANOSIS [None]
  - LOSS OF CONSCIOUSNESS [None]
  - SYNCOPE [None]
